FAERS Safety Report 15136061 (Version 2)
Quarter: 2019Q1

REPORT INFORMATION
  Report Type: Spontaneous
  Country: FR (occurrence: FR)
  Receive Date: 20180712
  Receipt Date: 20190116
  Transmission Date: 20190417
  Serious: Yes (Other)
  Sender: FDA-Public Use
  Company Number: PHHY2018FR038831

PATIENT
  Age: 4 Year
  Sex: Male
  Weight: 20.2 kg

DRUGS (10)
  1. TAREG [Suspect]
     Active Substance: VALSARTAN
     Dosage: 5 MG, UNK
     Route: 048
     Dates: start: 20180528
  2. RENVELA [Concomitant]
     Active Substance: SEVELAMER CARBONATE
     Indication: RENAL FAILURE
     Dosage: UNK
     Route: 048
  3. ZYLORIC [Concomitant]
     Active Substance: ALLOPURINOL
     Indication: RENAL FAILURE
     Dosage: UNK
     Route: 048
  4. TAREG [Suspect]
     Active Substance: VALSARTAN
     Indication: RENAL FAILURE
     Dosage: 5 MG, UNK
     Route: 048
     Dates: start: 20180326, end: 201804
  5. TAREG [Suspect]
     Active Substance: VALSARTAN
     Dosage: 20 MG, UNK
     Route: 048
     Dates: start: 20180918, end: 201810
  6. UN-ALFA [Concomitant]
     Active Substance: ALFACALCIDOL
     Indication: CHRONIC KIDNEY DISEASE
     Dosage: UNK
     Route: 048
  7. SODIUM CARBONATE [Concomitant]
     Active Substance: SODIUM CARBONATE
     Indication: RENAL FAILURE
     Dosage: UNK
     Route: 048
  8. FERROSTRANE [Concomitant]
     Active Substance: SODIUM FEREDETATE
     Indication: RENAL FAILURE
     Dosage: UNK
     Route: 048
  9. TAREG [Suspect]
     Active Substance: VALSARTAN
     Dosage: 10 MG, UNK
     Route: 048
     Dates: start: 20180409, end: 20180528
  10. CALCIDOSE [Concomitant]
     Active Substance: CALCIUM CARBONATE
     Indication: RENAL FAILURE
     Dosage: UNK
     Route: 048

REACTIONS (3)
  - Haematochezia [Recovered/Resolved]
  - Product use issue [Not Recovered/Not Resolved]
  - Rectal haemorrhage [Recovered/Resolved]

NARRATIVE: CASE EVENT DATE: 20180328
